FAERS Safety Report 20942658 (Version 1)
Quarter: 2022Q2

REPORT INFORMATION
  Report Type: Spontaneous
  Country: MY (occurrence: MY)
  Receive Date: 20220610
  Receipt Date: 20220610
  Transmission Date: 20220721
  Serious: Yes (Hospitalization)
  Sender: FDA-Public Use
  Company Number: MY-STRIDES ARCOLAB LIMITED-2022SP006710

PATIENT
  Age: 38 Year
  Sex: Female

DRUGS (4)
  1. PREDNISOLONE [Suspect]
     Active Substance: PREDNISOLONE
     Indication: Systemic lupus erythematosus
     Dosage: 40 MILLIGRAM, QD
     Route: 065
     Dates: start: 2020
  2. PREDNISOLONE [Suspect]
     Active Substance: PREDNISOLONE
     Dosage: 10 MILLIGRAM, QD
     Route: 065
     Dates: start: 2020
  3. HYDROXYCHLOROQUINE [Suspect]
     Active Substance: HYDROXYCHLOROQUINE
     Indication: Systemic lupus erythematosus
     Dosage: 200 MILLIGRAM, QD
     Route: 065
     Dates: start: 2020
  4. CYCLOPHOSPHAMIDE [Suspect]
     Active Substance: CYCLOPHOSPHAMIDE
     Indication: Lupus nephritis
     Dosage: 500 MILLIGRAM, EVERY MONTH (SCHEDULED TO RECEIVE SIX CYCLES)
     Route: 042

REACTIONS (8)
  - Pleural effusion [Recovered/Resolved]
  - Burkholderia pseudomallei infection [Recovered/Resolved]
  - Encephalitis [Recovered/Resolved]
  - Sepsis [Recovered/Resolved]
  - Liver abscess [Recovered/Resolved]
  - Abscess [Recovered/Resolved]
  - Spleen disorder [Recovered/Resolved]
  - Osteomyelitis [Recovered/Resolved]

NARRATIVE: CASE EVENT DATE: 20200101
